FAERS Safety Report 5115612-X (Version None)
Quarter: 2006Q3

REPORT INFORMATION
  Report Type: 
  Country: None (occurrence: None)
  Receive Date: 20060927
  Receipt Date: 20060916
  Transmission Date: 20061208
  Serious: Yes (Hospitalization)
  Sender: FDA-Public Use
  Company Number: TN-BAYER-200614230GDS

PATIENT
  Age: 45 Year
  Sex: Male
  Weight: 45 kg

DRUGS (2)
  1. CIFLOX [Suspect]
     Indication: DRUG USE FOR UNKNOWN INDICATION
     Dosage: UNIT DOSE: 400 MG
     Route: 042
  2. TAZOCILLINE [Suspect]
     Indication: DRUG USE FOR UNKNOWN INDICATION
     Route: 065

REACTIONS (3)
  - LEUKOPENIA [None]
  - NYSTAGMUS [None]
  - THROMBOCYTOPENIA [None]
